FAERS Safety Report 5968881-8 (Version None)
Quarter: 2008Q4

REPORT INFORMATION
  Report Type: 
  Country: None (occurrence: None)
  Receive Date: 20081126
  Receipt Date: 20081120
  Transmission Date: 20090506
  Serious: Yes (Hospitalization)
  Sender: FDA-Public Use
  Company Number: US-ABBOTT-08P-163-0489141-00

PATIENT
  Sex: Male
  Weight: 70.37 kg

DRUGS (1)
  1. HUMIRA [Suspect]
     Indication: CROHN'S DISEASE
     Route: 058
     Dates: start: 20081001

REACTIONS (5)
  - ANTINUCLEAR ANTIBODY POSITIVE [None]
  - INFECTIOUS MONONUCLEOSIS [None]
  - MALAISE [None]
  - PLATELET COUNT ABNORMAL [None]
  - VIRAL INFECTION [None]
